FAERS Safety Report 24146531 (Version 2)
Quarter: 2024Q3

REPORT INFORMATION
  Report Type: Spontaneous
  Country: US (occurrence: US)
  Receive Date: 20240729
  Receipt Date: 20240802
  Transmission Date: 20241017
  Serious: Yes (Other)
  Sender: RANBAXY
  Company Number: US-SUN PHARMACEUTICAL INDUSTRIES LTD-2024R1-459103

PATIENT
  Age: 32 Year
  Sex: Male

DRUGS (3)
  1. DEXAMETHASONE\TOBRAMYCIN [Suspect]
     Active Substance: DEXAMETHASONE\TOBRAMYCIN
     Indication: Keratitis
     Dosage: UNK
     Route: 061
  2. NATAMYCIN [Concomitant]
     Active Substance: NATAMYCIN
     Indication: Keratitis
     Dosage: EVEY HOUR
     Route: 061
  3. OFLOXACIN [Concomitant]
     Active Substance: OFLOXACIN
     Indication: Keratitis
     Dosage: UNK, QID
     Route: 065

REACTIONS (1)
  - Condition aggravated [Unknown]
